FAERS Safety Report 8422877-5 (Version None)
Quarter: 2012Q2

REPORT INFORMATION
  Report Type: 
  Country: None (occurrence: None)
  Receive Date: 20120608
  Receipt Date: 20120531
  Transmission Date: 20120825
  Serious: Yes (Hospitalization)
  Sender: FDA-Public Use
  Company Number: US-GLAXOSMITHKLINE-A0887256A

PATIENT
  Age: 69 Year
  Sex: Female

DRUGS (4)
  1. PROTONIX [Concomitant]
  2. AVANDIA [Suspect]
     Indication: TYPE 2 DIABETES MELLITUS
     Dosage: 2MG PER DAY
     Route: 048
     Dates: start: 20040101, end: 20070802
  3. SYNTHROID [Concomitant]
  4. NORVASC [Concomitant]

REACTIONS (2)
  - ATRIAL FIBRILLATION [None]
  - SICK SINUS SYNDROME [None]
